FAERS Safety Report 9798731 (Version 2)
Quarter: 2014Q1

REPORT INFORMATION
  Report Type: Spontaneous
  Country: US (occurrence: US)
  Receive Date: 20140106
  Receipt Date: 20140106
  Transmission Date: 20141002
  Serious: Yes (Hospitalization)
  Sender: FDA-Public Use
  Company Number: US-GILEAD-2010-0029810

PATIENT
  Sex: Female
  Weight: 43.09 kg

DRUGS (11)
  1. LETAIRIS [Suspect]
     Indication: PULMONARY ARTERIAL HYPERTENSION
     Route: 048
     Dates: start: 20100420
  2. DILTIAZEM [Concomitant]
  3. DIGOXIN [Concomitant]
  4. NITROGLYCERIN [Concomitant]
  5. THEOPHYLLINE [Concomitant]
  6. ADVAIR [Concomitant]
  7. ALBUTEROL [Concomitant]
  8. ATROVENT [Concomitant]
  9. SINGULAIR [Concomitant]
  10. PHENERGAN [Concomitant]
  11. MEGESTROL [Concomitant]

REACTIONS (2)
  - Local swelling [Not Recovered/Not Resolved]
  - Dyspnoea [Not Recovered/Not Resolved]
